FAERS Safety Report 10362565 (Version 3)
Quarter: 2019Q2

REPORT INFORMATION
  Report Type: Spontaneous
  Country: US (occurrence: US)
  Receive Date: 20140805
  Receipt Date: 20190621
  Transmission Date: 20190711
  Serious: No
  Sender: FDA-Public Use
  Company Number: US-PFIZER INC-2014216326

PATIENT
  Age: 61 Year
  Sex: Female
  Weight: 78 kg

DRUGS (3)
  1. ESTRING [Suspect]
     Active Substance: ESTRADIOL
     Indication: BLADDER DISORDER
  2. ESTRING [Suspect]
     Active Substance: ESTRADIOL
     Indication: OESTROGEN REPLACEMENT THERAPY
     Dosage: 2 MG, UNK
     Route: 067
  3. SKELAXIN [CLONIXIN LYSINATE] [Concomitant]
     Active Substance: CLONIXIN LYSINE
     Indication: FIBROMYALGIA
     Dosage: 800 MG AS NEEDED; USUALLY BREAKS THEM IN HALF
     Route: 048
     Dates: start: 2009

REACTIONS (10)
  - Pain [Unknown]
  - Ovarian cyst [Not Recovered/Not Resolved]
  - Weight increased [Unknown]
  - Vulvovaginal discomfort [Unknown]
  - Pollakiuria [Unknown]
  - Abdominal distension [Unknown]
  - Therapeutic product effect incomplete [Unknown]
  - Loss of personal independence in daily activities [Unknown]
  - Nausea [Unknown]
  - Dysuria [Unknown]

NARRATIVE: CASE EVENT DATE: 201309
